FAERS Safety Report 5605268-1 (Version None)
Quarter: 2008Q1

REPORT INFORMATION
  Report Type: 
  Country: None (occurrence: None)
  Receive Date: 20080129
  Receipt Date: 20080117
  Transmission Date: 20080703
  Serious: Yes (Other)
  Sender: FDA-Public Use
  Company Number: US-PFIZER INC-2007093257

PATIENT
  Sex: Male
  Weight: 74.8 kg

DRUGS (6)
  1. LIPITOR [Suspect]
     Indication: BLOOD CHOLESTEROL INCREASED
  2. ACIPHEX [Concomitant]
  3. ADVAIR DISKUS 100/50 [Concomitant]
  4. ASPIRIN [Concomitant]
  5. MONTELUKAST SODIUM [Concomitant]
  6. NASONEX [Concomitant]

REACTIONS (2)
  - MUSCLE ATROPHY [None]
  - MYALGIA [None]
